FAERS Safety Report 10632347 (Version 1)
Quarter: 2014Q4

REPORT INFORMATION
  Report Type: Spontaneous
  Country: US (occurrence: US)
  Receive Date: 20141205
  Receipt Date: 20141205
  Transmission Date: 20150529
  Serious: No
  Sender: FDA-Public Use
  Company Number: US-BRISTOL-MYERS SQUIBB COMPANY-21205521

PATIENT
  Age: 69 Year
  Sex: Female

DRUGS (2)
  1. ORENCIA [Suspect]
     Active Substance: ABATACEPT
     Route: 058
  2. ATENOLOL. [Concomitant]
     Active Substance: ATENOLOL

REACTIONS (9)
  - Palpitations [Unknown]
  - Fatigue [Unknown]
  - Dyspepsia [Unknown]
  - Irritable bowel syndrome [Unknown]
  - Heart rate decreased [Unknown]
  - Heart rate increased [Unknown]
  - Pyrexia [Unknown]
  - Influenza like illness [Unknown]
  - Arthralgia [Unknown]
